FAERS Safety Report 16877210 (Version 1)
Quarter: 2019Q4

REPORT INFORMATION
  Report Type: Spontaneous
  Country: FR (occurrence: FR)
  Receive Date: 20191002
  Receipt Date: 20191002
  Transmission Date: 20200122
  Serious: Yes (Hospitalization, Other)
  Sender: FDA-Public Use
  Company Number: FR-TEVA-2019-FR-1116115

PATIENT
  Age: 72 Year
  Sex: Female

DRUGS (2)
  1. VALSARTAN TEVA [Suspect]
     Active Substance: VALSARTAN
     Route: 065
     Dates: start: 201609, end: 201809
  2. VALSARTAN MYLAN [Suspect]
     Active Substance: VALSARTAN
     Route: 065
     Dates: start: 201403, end: 201606

REACTIONS (2)
  - Ovarian cancer [Unknown]
  - Product impurity [Unknown]

NARRATIVE: CASE EVENT DATE: 201809
